FAERS Safety Report 6717782-6 (Version None)
Quarter: 2010Q2

REPORT INFORMATION
  Report Type: 
  Country: None (occurrence: None)
  Receive Date: 20100507
  Receipt Date: 20100507
  Transmission Date: 20101027
  Serious: No
  Sender: FDA-Public Use
  Company Number: None

PATIENT
  Age: 54 Year
  Sex: Female
  Weight: 53.0709 kg

DRUGS (5)
  1. VALACYCLOVIR [Suspect]
     Indication: GENITAL HERPES
     Dosage: 500 MG. ONCE A DAY PO
     Route: 048
     Dates: start: 20100101, end: 20100506
  2. ALLEGRA D 24 HOUR [Concomitant]
  3. BUPROPION HCL [Concomitant]
  4. FLUTICASONE NASAL SPRAY [Concomitant]
  5. ALPRAZOLAM [Concomitant]

REACTIONS (4)
  - CONDITION AGGRAVATED [None]
  - DRUG EFFECT DECREASED [None]
  - GENITAL HERPES [None]
  - PRODUCT SUBSTITUTION ISSUE [None]
